FAERS Safety Report 14250780 (Version 7)
Quarter: 2018Q2

REPORT INFORMATION
  Report Type: Spontaneous
  Country: US (occurrence: US)
  Receive Date: 20171205
  Receipt Date: 20180530
  Transmission Date: 20180711
  Serious: No
  Sender: FDA-Public Use
  Company Number: US-PFIZER INC-2017517243

PATIENT
  Age: 78 Year
  Sex: Female
  Weight: 84 kg

DRUGS (4)
  1. SUTENT [Suspect]
     Active Substance: SUNITINIB MALATE
     Dosage: 25 MG, CYCLIC (DAYS 1-28 Q42 DAYS)
     Route: 048
     Dates: start: 20180123
  2. SUTENT [Suspect]
     Active Substance: SUNITINIB MALATE
     Dosage: 25 MG, CYCLIC, [DAYS 1-28 Q42 DAYS]
     Route: 048
     Dates: start: 20171128
  3. SUTENT [Suspect]
     Active Substance: SUNITINIB MALATE
     Dosage: 25 MG, CYCLIC (DAYS 1-28 Q42 DAYS)
     Route: 048
     Dates: start: 20171128
  4. SUTENT [Suspect]
     Active Substance: SUNITINIB MALATE
     Indication: RENAL CELL CARCINOMA
     Dosage: 37.5 MG, CYCLIC, (D1- 28 Q42 DAYS)
     Route: 048
     Dates: start: 20171128

REACTIONS (12)
  - Pain in extremity [Unknown]
  - Gait disturbance [Unknown]
  - Blister [Unknown]
  - Inflammation [Unknown]
  - Cough [Unknown]
  - Dyspepsia [Not Recovered/Not Resolved]
  - Nocturnal dyspnoea [Unknown]
  - Ejection fraction decreased [Unknown]
  - Neoplasm progression [Unknown]
  - Insomnia [Unknown]
  - Hyperkeratosis [Unknown]
  - Cardiac disorder [Unknown]

NARRATIVE: CASE EVENT DATE: 201711
